FAERS Safety Report 7114194-0 (Version None)
Quarter: 2010Q4

REPORT INFORMATION
  Report Type: 
  Country: None (occurrence: None)
  Receive Date: 20101119
  Receipt Date: 20101109
  Transmission Date: 20110411
  Serious: Yes (Other)
  Sender: FDA-Public Use
  Company Number: US-JNJFOC-20090905589

PATIENT
  Sex: Female

DRUGS (6)
  1. TYLENOL (CAPLET) [Suspect]
  2. TYLENOL (CAPLET) [Suspect]
     Indication: HEADACHE
  3. REBIF [Suspect]
     Indication: MULTIPLE SCLEROSIS
     Route: 058
  4. VYTORIN [Concomitant]
     Indication: BLOOD CHOLESTEROL INCREASED
  5. TRICOR [Concomitant]
     Indication: BLOOD CHOLESTEROL INCREASED
  6. ANTIHYPERTENSIVE [Concomitant]
     Indication: HYPERTENSION

REACTIONS (3)
  - ALANINE AMINOTRANSFERASE INCREASED [None]
  - ASPARTATE AMINOTRANSFERASE INCREASED [None]
  - GAMMA-GLUTAMYLTRANSFERASE INCREASED [None]
